FAERS Safety Report 13258196 (Version 2)
Quarter: 2017Q1

REPORT INFORMATION
  Report Type: Spontaneous
  Country: VN (occurrence: VN)
  Receive Date: 20170221
  Receipt Date: 20170316
  Transmission Date: 20170428
  Serious: Yes (Other)
  Sender: FDA-Public Use
  Company Number: VN-ROCHE-1896332

PATIENT
  Age: 70 Year
  Sex: Female

DRUGS (9)
  1. MABTHERA [Suspect]
     Active Substance: RITUXIMAB
     Indication: LYMPHOMA
     Dosage: IN R-CHOP REGIMEN, 6 CYCLES
     Route: 065
     Dates: start: 2009, end: 201002
  2. CYCLOPHOSPHAMIDE. [Suspect]
     Active Substance: CYCLOPHOSPHAMIDE
     Indication: LYMPHOMA
     Dosage: 6 CYCLES: CYCLOPHOSPHAMIDE, DOXORUBICIN, VINCRISTINE, AND PREDNISONE
     Route: 065
     Dates: start: 2009, end: 201002
  3. MABTHERA [Suspect]
     Active Substance: RITUXIMAB
     Indication: B-CELL LYMPHOMA
     Dosage: IN R-ICE REGIMEN
     Route: 065
     Dates: start: 2016
  4. IFOSFAMIDE. [Suspect]
     Active Substance: IFOSFAMIDE
     Indication: B-CELL LYMPHOMA
     Dosage: IFOSFAMIDE, CARBOPLATIN AND ETOPOSIDE
     Route: 065
     Dates: start: 2016
  5. CARBOPLATIN. [Suspect]
     Active Substance: CARBOPLATIN
     Indication: B-CELL LYMPHOMA
     Dosage: IFOSFAMIDE, CARBOPLATIN AND ETOPOSIDE
     Route: 065
     Dates: start: 2016
  6. ETOPOSIDE. [Suspect]
     Active Substance: ETOPOSIDE
     Indication: B-CELL LYMPHOMA
     Dosage: IFOSFAMIDE, CARBOPLATIN AND ETOPOSIDE
     Route: 065
     Dates: start: 2016
  7. PREDNISONE. [Suspect]
     Active Substance: PREDNISONE
     Indication: LYMPHOMA
     Dosage: 6 CYCLES
     Route: 065
     Dates: start: 2009, end: 201002
  8. DOXORUBICIN [Suspect]
     Active Substance: DOXORUBICIN
     Indication: LYMPHOMA
     Dosage: 6 CYCLES
     Route: 065
     Dates: start: 2009, end: 201002
  9. VINCRISTINE [Suspect]
     Active Substance: VINCRISTINE
     Indication: LYMPHOMA
     Dosage: 6 CYCLES
     Route: 065
     Dates: start: 2009, end: 201002

REACTIONS (4)
  - Neutropenia [Unknown]
  - Lymphoma transformation [Unknown]
  - Febrile neutropenia [Unknown]
  - Off label use [Unknown]
